FAERS Safety Report 4354992-X (Version None)
Quarter: 2004Q2

REPORT INFORMATION
  Report Type: 
  Country: None (occurrence: None)
  Receive Date: 20040504
  Receipt Date: 20040329
  Transmission Date: 20050107
  Serious: Yes (Other)
  Sender: FDA-Public Use
  Company Number: RB-597-2004

PATIENT
  Age: 36 Year
  Sex: Male

DRUGS (2)
  1. BUPRENORPHINE HYDROCHLORIDE [Suspect]
     Indication: DEPENDENCE
     Dosage: 2 MG PO
     Route: 048
     Dates: start: 20031201
  2. ALCOHOL [Concomitant]

REACTIONS (3)
  - BRACHIAL PLEXUS INJURY [None]
  - INSOMNIA [None]
  - MONOPLEGIA [None]
